FAERS Safety Report 24905107 (Version 1)
Quarter: 2025Q1

REPORT INFORMATION
  Report Type: Spontaneous
  Country: US (occurrence: US)
  Receive Date: 20250130
  Receipt Date: 20250130
  Transmission Date: 20250409
  Serious: No
  Sender: BAYER HEALTHCARE LLC
  Company Number: US-BAYER-2025A011588

PATIENT
  Age: 46 Year

DRUGS (22)
  1. CLARITIN [Suspect]
     Active Substance: LORATADINE
  2. EMGALITY [Concomitant]
     Active Substance: GALCANEZUMAB-GNLM
  3. XOLAIR [Concomitant]
     Active Substance: OMALIZUMAB
  4. HUMIRA [Concomitant]
     Active Substance: ADALIMUMAB
  5. ZEPBOUND [Concomitant]
     Active Substance: TIRZEPATIDE
  6. ADDERALL [Concomitant]
     Active Substance: AMPHETAMINE ASPARTATE\AMPHETAMINE SULFATE\DEXTROAMPHETAMINE SACCHARATE\DEXTROAMPHETAMINE SULFATE
  7. PROZAC [Concomitant]
     Active Substance: FLUOXETINE HYDROCHLORIDE
  8. ZYRTEC [Concomitant]
     Active Substance: CETIRIZINE HYDROCHLORIDE
  9. SEROQUEL [Concomitant]
     Active Substance: QUETIAPINE FUMARATE
  10. BUSPAR [Concomitant]
     Active Substance: BUSPIRONE HYDROCHLORIDE
  11. RESTORIL [Concomitant]
     Active Substance: TEMAZEPAM
  12. TOPAMAX [Concomitant]
     Active Substance: TOPIRAMATE
  13. MINIPRESS [Concomitant]
     Active Substance: PRAZOSIN HYDROCHLORIDE
  14. NEURONTIN [Concomitant]
     Active Substance: GABAPENTIN
  15. SINGULAIR [Concomitant]
     Active Substance: MONTELUKAST SODIUM
  16. VESICARE [Concomitant]
     Active Substance: SOLIFENACIN SUCCINATE
  17. PREMARIN [Concomitant]
     Active Substance: ESTROGENS, CONJUGATED
  18. COENZYME Q10 [Concomitant]
     Active Substance: DIETARY SUPPLEMENT\UBIDECARENONE
  19. Glucosamine + chondroitin [Concomitant]
  20. VITAMIN A [Concomitant]
     Active Substance: VITAMIN A
  21. VITAMIN D3 [Concomitant]
     Active Substance: CHOLECALCIFEROL
  22. IRON [Concomitant]
     Active Substance: IRON

REACTIONS (4)
  - Lymph node pain [None]
  - Lymphadenopathy [None]
  - Feeling hot [None]
  - Skin irritation [None]
